FAERS Safety Report 11089371 (Version 2)
Quarter: 2015Q3

REPORT INFORMATION
  Report Type: Spontaneous
  Country: IT (occurrence: IT)
  Receive Date: 20150505
  Receipt Date: 20150714
  Transmission Date: 20151125
  Serious: Yes (Other)
  Sender: FDA-Public Use
  Company Number: IT-ACCORD-030382

PATIENT
  Age: 68 Year
  Sex: Male

DRUGS (4)
  1. AVASTIN [Suspect]
     Active Substance: BEVACIZUMAB
     Indication: COLON CANCER METASTATIC
     Dosage: UPTO 06-MAR-2015, STRENGTH: 400 MG
     Route: 042
     Dates: start: 20150220
  2. OXALIPLATIN SUN [Suspect]
     Active Substance: OXALIPLATIN
     Indication: COLON CANCER METASTATIC
     Dosage: UPTO 06-MAR-2015, STRENGTH:5MG/ML
     Route: 042
     Dates: start: 20150202
  3. FLUOROURACIL ACCORD [Suspect]
     Active Substance: FLUOROURACIL
     Indication: COLON CANCER METASTATIC
     Dosage: UPTO 06-MAR-2015??STRENGH:50MG/ML
     Route: 042
     Dates: start: 20150202
  4. LEDERFOLIN [Concomitant]
     Active Substance: LEUCOVORIN CALCIUM
     Dosage: 175 MG
     Route: 042
     Dates: start: 20150202, end: 20150306

REACTIONS (2)
  - Venous thrombosis [Not Recovered/Not Resolved]
  - Catheter site pain [Not Recovered/Not Resolved]

NARRATIVE: CASE EVENT DATE: 20150320
